FAERS Safety Report 8176820-7 (Version None)
Quarter: 2012Q1

REPORT INFORMATION
  Report Type: 
  Country: None (occurrence: None)
  Receive Date: 20120228
  Receipt Date: 20120220
  Transmission Date: 20120608
  Serious: Yes (Hospitalization)
  Sender: FDA-Public Use
  Company Number: 1192371

PATIENT
  Age: 29 Year
  Sex: Female

DRUGS (8)
  1. NOREPINEPHRINE BITARTRATE [Suspect]
     Indication: SHOCK HAEMORRHAGIC
     Dosage: 1.25 MG/H,INTRAVENOUS DRIP
     Route: 041
  2. (NALADOR) [Suspect]
     Indication: POSTPARTUM HAEMORRHAGE
     Dosage: 500 MCG, INTRAVENOUS DRIP
     Route: 041
  3. SODIUM CHLORIDE [Concomitant]
  4. SYNTOCINON [Concomitant]
  5. HETASTARCH IN SODIUM CHLORIDE [Concomitant]
  6. RED BLOOD CELLS [Concomitant]
  7. SODIUM CHLORIDE [Concomitant]
  8. RED BLOOD CELLS [Concomitant]

REACTIONS (14)
  - MULTI-ORGAN FAILURE [None]
  - HAEMODIALYSIS [None]
  - SUBARACHNOID HAEMORRHAGE [None]
  - CAROTID ARTERY STENOSIS [None]
  - MYOCARDIAL ISCHAEMIA [None]
  - POSTPARTUM DISORDER [None]
  - RENAL TUBULAR NECROSIS [None]
  - EJECTION FRACTION DECREASED [None]
  - CONVULSION [None]
  - DISSEMINATED INTRAVASCULAR COAGULATION [None]
  - ALANINE AMINOTRANSFERASE INCREASED [None]
  - ANGIOPATHY [None]
  - RENAL FAILURE ACUTE [None]
  - ASPARTATE AMINOTRANSFERASE INCREASED [None]
